FAERS Safety Report 7362108-0 (Version None)
Quarter: 2011Q1

REPORT INFORMATION
  Report Type: 
  Country: None (occurrence: None)
  Receive Date: 20110318
  Receipt Date: 20101126
  Transmission Date: 20110831
  Serious: Yes (Hospitalization)
  Sender: FDA-Public Use
  Company Number: FR-US-EMD SERONO, INC.-7017182

PATIENT
  Sex: Female
  Weight: 63 kg

DRUGS (3)
  1. GONAL-F [Suspect]
     Indication: POLYCYSTIC OVARIES
     Dates: start: 20100817, end: 20100825
  2. OVITRELLE [Suspect]
     Indication: POLYCYSTIC OVARIES
     Dates: start: 20100826, end: 20100826
  3. CETROTIDE [Suspect]
     Indication: POLYCYSTIC OVARIES
     Dates: start: 20100822, end: 20100826

REACTIONS (1)
  - OVARIAN HYPERSTIMULATION SYNDROME [None]
